FAERS Safety Report 14981682 (Version 1)
Quarter: 2018Q2

REPORT INFORMATION
  Report Type: Spontaneous
  Country: DE (occurrence: DE)
  Receive Date: 20180607
  Receipt Date: 20180607
  Transmission Date: 20180711
  Serious: Yes (Hospitalization)
  Sender: FDA-Public Use
  Company Number: DE-SUN PHARMACEUTICAL INDUSTRIES LTD-2018RR-175057

PATIENT
  Age: 83 Year
  Sex: Male

DRUGS (9)
  1. SIMVASTATIN. [Concomitant]
     Active Substance: SIMVASTATIN
     Indication: PRODUCT USED FOR UNKNOWN INDICATION
     Dosage: 40 MG, 0-0-1-0 ()
     Route: 065
  2. METAMIZOL [Concomitant]
     Active Substance: METAMIZOLE SODIUM
     Indication: PRODUCT USED FOR UNKNOWN INDICATION
     Dosage: NK MG, 1-3 TBL. ()
     Route: 065
  3. EISEN [Concomitant]
     Indication: PRODUCT USED FOR UNKNOWN INDICATION
     Dosage: 100 MG, 1-0-0-0 ()
     Route: 065
  4. PANTOPRAZOL [Concomitant]
     Active Substance: PANTOPRAZOLE SODIUM
     Indication: PRODUCT USED FOR UNKNOWN INDICATION
     Dosage: 40 MG, 1-0-1-0 ()
     Route: 065
  5. ALLOPURINOL. [Concomitant]
     Active Substance: ALLOPURINOL
     Indication: PRODUCT USED FOR UNKNOWN INDICATION
     Dosage: 100 MG, 1-0-0-0 ()
     Route: 065
  6. CLOPIDOGREL [Suspect]
     Active Substance: CLOPIDOGREL BISULFATE
     Indication: PRODUCT USED FOR UNKNOWN INDICATION
     Dosage: 75 MG, 1-0-0-0 ()
     Route: 065
  7. LIXIANA [Suspect]
     Active Substance: EDOXABAN TOSYLATE
     Indication: PRODUCT USED FOR UNKNOWN INDICATION
     Dosage: 30 MG, 1-0-0-0 ()
     Route: 065
  8. METOPROLOL. [Concomitant]
     Active Substance: METOPROLOL
     Indication: PRODUCT USED FOR UNKNOWN INDICATION
     Dosage: 23.75 MG, 0.5-0-0-0 ()
     Route: 065
  9. TORASEMID [Concomitant]
     Active Substance: TORSEMIDE
     Indication: PRODUCT USED FOR UNKNOWN INDICATION
     Dosage: 10 MG, 0.5-0-0-0 ()
     Route: 065

REACTIONS (2)
  - Anaemia [Unknown]
  - Dizziness [Unknown]
